FAERS Safety Report 24177652 (Version 1)
Quarter: 2024Q3

REPORT INFORMATION
  Report Type: Spontaneous
  Country: ES (occurrence: None)
  Receive Date: 20240806
  Receipt Date: 20240806
  Transmission Date: 20241016
  Serious: Yes (Disabling, Congenital Anomaly)
  Sender: ASTRAZENECA
  Company Number: 2024A171714

PATIENT
  Age: 81 Year
  Sex: Male
  Weight: 100 kg

DRUGS (7)
  1. SYMBICORT [Suspect]
     Active Substance: BUDESONIDE\FORMOTEROL FUMARATE DIHYDRATE
     Indication: Chronic obstructive pulmonary disease
     Dosage: 2 INHALATIONS DIVIDED INTO 4 TIMES A DAY
     Dates: start: 20220422
  2. AZITROMICINA STADA [Concomitant]
     Indication: Pneumonia
     Dosage: 1 A DAY FOR 4 DAYS
  3. OMEPRAZOL GOBENS [Concomitant]
     Indication: Dyspepsia
     Dosage: 1 CAPSULE A DAY
  4. ALBUTEROL [Concomitant]
     Active Substance: ALBUTEROL
     Indication: Chronic obstructive pulmonary disease
     Dosage: 2 INHALATIONS A DAY
  5. ENALAPRIL\HYDROCHLOROTHIAZIDE [Concomitant]
     Active Substance: ENALAPRIL\HYDROCHLOROTHIAZIDE
     Indication: Hypertension
     Dosage: 1 TABLET A DAY
  6. SILODOSIN [Concomitant]
     Active Substance: SILODOSIN
     Indication: Prostate cancer
     Dosage: 1 A DAY
     Dates: start: 20200514
  7. PARACETAMOL RATIO [Concomitant]
     Indication: Pain
     Dosage: 1 OR 2 A DAY

REACTIONS (2)
  - Arthralgia [Not Recovered/Not Resolved]
  - Myositis [Not Recovered/Not Resolved]

NARRATIVE: CASE EVENT DATE: 20240524
